FAERS Safety Report 13601093 (Version 2)
Quarter: 2018Q4

REPORT INFORMATION
  Report Type: Spontaneous
  Country: RU (occurrence: RU)
  Receive Date: 20170601
  Receipt Date: 20181005
  Transmission Date: 20190204
  Serious: Yes (Other)
  Sender: FDA-Public Use
  Company Number: RU-ASTRAZENECA-2017SE56857

PATIENT
  Age: 42 Year
  Sex: Male
  Weight: 92 kg

DRUGS (5)
  1. INDAPAMIDE. [Concomitant]
     Active Substance: INDAPAMIDE
  2. METOPROLOL. [Concomitant]
     Active Substance: METOPROLOL
  3. ACETYLSALICYLIC ACID [Concomitant]
     Active Substance: ASPIRIN
  4. PRESTARIUM A [Concomitant]
     Active Substance: PERINDOPRIL ARGININE
  5. BRILINTA [Suspect]
     Active Substance: TICAGRELOR
     Indication: MYOCARDIAL INFARCTION
     Route: 048
     Dates: start: 2014

REACTIONS (4)
  - Infarction [Unknown]
  - Myocardial infarction [Unknown]
  - Product use issue [Unknown]
  - Off label use [Not Recovered/Not Resolved]

NARRATIVE: CASE EVENT DATE: 2017
